FAERS Safety Report 6053040-3 (Version None)
Quarter: 2009Q1

REPORT INFORMATION
  Report Type: 
  Country: None (occurrence: None)
  Receive Date: 20090127
  Receipt Date: 20090116
  Transmission Date: 20090719
  Serious: Yes (Hospitalization)
  Sender: FDA-Public Use
  Company Number: FR-JNJFOC-20090104459

PATIENT
  Age: 83 Year
  Sex: Female

DRUGS (5)
  1. REMICADE [Suspect]
     Indication: RHEUMATOID ARTHRITIS
     Route: 042
  2. ENBREL [Suspect]
     Route: 058
  3. ENBREL [Suspect]
     Indication: RHEUMATOID ARTHRITIS
     Route: 058
  4. HUMIRA [Suspect]
     Indication: RHEUMATOID ARTHRITIS
     Route: 058
  5. SOLUPRED [Suspect]
     Indication: RHEUMATOID ARTHRITIS
     Route: 048

REACTIONS (6)
  - ARTHRALGIA [None]
  - BENIGN NEOPLASM OF SKIN [None]
  - DISLOCATION OF JOINT PROSTHESIS [None]
  - DRUG INEFFECTIVE [None]
  - JOINT TUBERCULOSIS [None]
  - URINARY TRACT INFECTION [None]
